FAERS Safety Report 5191852-9 (Version None)
Quarter: 2006Q4

REPORT INFORMATION
  Report Type: 
  Country: None (occurrence: None)
  Receive Date: 20061219
  Receipt Date: 20061201
  Transmission Date: 20070319
  Serious: Yes (Death, Hospitalization)
  Sender: FDA-Public Use
  Company Number: JP-1160121

PATIENT
  Age: 74 Year
  Sex: Male

DRUGS (2)
  1. FLUORESCITE(FLUORESCEIN) 10% INJECTION [Suspect]
     Indication: ANGIOGRAM RETINA
     Dosage: 1.5 ML INTRAVENOUS BOLUS
     Route: 040
     Dates: start: 20061107, end: 20061107
  2. AMLODIPINE BESYLATE [Concomitant]

REACTIONS (3)
  - ANAPHYLACTIC SHOCK [None]
  - HYPOPNOEA [None]
  - LOSS OF CONSCIOUSNESS [None]
